FAERS Safety Report 8190658-6 (Version None)
Quarter: 2012Q1

REPORT INFORMATION
  Report Type: 
  Country: None (occurrence: None)
  Receive Date: 20120307
  Receipt Date: 20120222
  Transmission Date: 20120608
  Serious: Yes (Other)
  Sender: FDA-Public Use
  Company Number: DE-UCBSA-052678

PATIENT
  Sex: Male
  Weight: 85 kg

DRUGS (5)
  1. CERTOLIZUMAB PEGOL [Suspect]
     Indication: RHEUMATOID ARTHRITIS
     Route: 058
     Dates: start: 20110314
  2. CERTOLIZUMAB PEGOL [Suspect]
     Route: 058
     Dates: start: 20100920, end: 20100101
  3. CERTOLIZUMAB PEGOL [Suspect]
     Route: 058
     Dates: start: 20100606, end: 20100101
  4. CERTOLIZUMAB PEGOL [Suspect]
     Route: 058
     Dates: start: 20101209
  5. CERTOLIZUMAB PEGOL [Suspect]
     Route: 058
     Dates: start: 20100802, end: 20100101

REACTIONS (1)
  - AUTOIMMUNE HEPATITIS [None]
